FAERS Safety Report 7569717-4 (Version None)
Quarter: 2011Q2

REPORT INFORMATION
  Report Type: 
  Country: None (occurrence: None)
  Receive Date: 20110624
  Receipt Date: 20110622
  Transmission Date: 20111010
  Serious: No
  Sender: FDA-Public Use
  Company Number: US-PFIZER INC-2011138983

PATIENT
  Sex: Female
  Weight: 48 kg

DRUGS (1)
  1. RELISTOR [Suspect]
     Indication: CONSTIPATION
     Dosage: 0.4 ML, ALTERNATE DAY
     Route: 058
     Dates: start: 20110401

REACTIONS (2)
  - DYSGEUSIA [None]
  - HYPERHIDROSIS [None]
